FAERS Safety Report 17273493 (Version 1)
Quarter: 2020Q1

REPORT INFORMATION
  Report Type: Spontaneous
  Country: US (occurrence: US)
  Receive Date: 20200115
  Receipt Date: 20200115
  Transmission Date: 20200409
  Serious: No
  Sender: FDA-Public Use
  Company Number: None

PATIENT
  Sex: Male

DRUGS (1)
  1. QVAR REDIHALER [Suspect]
     Active Substance: BECLOMETHASONE DIPROPIONATE
     Dosage: ?          QUANTITY:2 PUFF(S);?
     Route: 055
     Dates: start: 20180901

REACTIONS (3)
  - Therapeutic product effect incomplete [None]
  - Drug delivery system malfunction [None]
  - Incorrect dose administered by device [None]
